FAERS Safety Report 18444853 (Version 2)
Quarter: 2021Q1

REPORT INFORMATION
  Report Type: Report from Study
  Country: None (occurrence: US)
  Receive Date: 20201030
  Receipt Date: 20210113
  Transmission Date: 20210419
  Serious: Yes (Other)
  Sender: FDA-Public Use
  Company Number: US-ABBVIE-20K-163-3626724-00

PATIENT
  Sex: Female

DRUGS (1)
  1. CREON [Suspect]
     Active Substance: PANCRELIPASE AMYLASE\PANCRELIPASE LIPASE\PANCRELIPASE PROTEASE
     Indication: PRODUCT USED FOR UNKNOWN INDICATION
     Route: 048

REACTIONS (8)
  - Surgery [Unknown]
  - Neoplasm malignant [Unknown]
  - Weight decreased [Unknown]
  - Memory impairment [Unknown]
  - Dental caries [Unknown]
  - Alopecia [Unknown]
  - Dyspepsia [Unknown]
  - Malnutrition [Unknown]
